FAERS Safety Report 18232465 (Version 1)
Quarter: 2020Q3

REPORT INFORMATION
  Report Type: Spontaneous
  Country: US (occurrence: US)
  Receive Date: 20200904
  Receipt Date: 20200904
  Transmission Date: 20201103
  Serious: Yes (Other)
  Sender: FDA-Public Use
  Company Number: US-HIKMA PHARMACEUTICALS USA INC.-US-H14001-20-51991

PATIENT
  Age: 69 Year
  Sex: Male

DRUGS (10)
  1. RASAGILINE. [Suspect]
     Active Substance: RASAGILINE
     Indication: PARKINSON^S DISEASE
     Dosage: DOSAGE AND NUMBER GRADUALLY INCREASED OVER THE PAST 5?6 YEARS
     Route: 065
  2. RASAGILINE. [Suspect]
     Active Substance: RASAGILINE
     Indication: PARKINSON^S DISEASE
     Route: 065
  3. CARBIDOPA 25 MG, LEVODOPA 250 MG [Concomitant]
     Indication: PARKINSON^S DISEASE
     Dosage: CARBIDOPA/LEVODOPA (25/250 MG)
     Route: 065
  4. ENTACAPONE. [Concomitant]
     Active Substance: ENTACAPONE
     Route: 065
  5. ROPINIROLE. [Suspect]
     Active Substance: ROPINIROLE
     Indication: PARKINSON^S DISEASE
     Route: 065
  6. ROPINIROLE. [Suspect]
     Active Substance: ROPINIROLE
     Dosage: DOSAGE AND NUMBER GRADUALLY INCREASED OVER THE PAST 5?6 YEARS
     Route: 065
  7. CARBIDOPA 50 MG, LEVODOPA 200 MG [Concomitant]
     Indication: PARKINSON^S DISEASE
     Dosage: CARBIDOPA/LEVODOPA (50/200 MG), AT BEDTIME
     Route: 065
  8. ENTACAPONE. [Concomitant]
     Active Substance: ENTACAPONE
     Indication: PARKINSON^S DISEASE
     Dosage: DOSAGE AND NUMBER GRADUALLY INCREASED OVER THE PAST 5?6 YEARS
     Route: 065
  9. CARBIDOPA 50 MG, LEVODOPA 200 MG [Concomitant]
     Indication: PARKINSON^S DISEASE
     Dosage: DOSAGE AND NUMBER GRADUALLY INCREASED OVER THE PAST 5?6 YEARS
     Route: 065
  10. CARBIDOPA 25 MG, LEVODOPA 250 MG [Concomitant]
     Indication: PARKINSON^S DISEASE
     Dosage: DOSAGE AND NUMBER GRADUALLY INCREASED OVER THE PAST 5?6 YEARS
     Route: 065

REACTIONS (2)
  - Hallucination, visual [Recovering/Resolving]
  - Insomnia [Recovering/Resolving]
